FAERS Safety Report 5980373-9 (Version None)
Quarter: 2008Q4

REPORT INFORMATION
  Report Type: 
  Country: None (occurrence: None)
  Receive Date: 20081205
  Receipt Date: 20071105
  Transmission Date: 20090506
  Serious: No
  Sender: FDA-Public Use
  Company Number: A0691381A

PATIENT
  Age: 30 Year
  Sex: Male

DRUGS (1)
  1. COMMIT [Suspect]
     Dates: end: 20071101

REACTIONS (4)
  - ABDOMINAL DISCOMFORT [None]
  - DIZZINESS [None]
  - NAUSEA [None]
  - VOMITING [None]
